FAERS Safety Report 21680147 (Version 3)
Quarter: 2022Q4

REPORT INFORMATION
  Report Type: Report from Study
  Country: ES (occurrence: ES)
  Receive Date: 20221205
  Receipt Date: 20221219
  Transmission Date: 20230113
  Serious: Yes (Other)
  Sender: FDA-Public Use
  Company Number: ES-AUROBINDO-AUR-APL-2022-051202

PATIENT
  Age: 55 Year
  Sex: Male
  Weight: 70 kg

DRUGS (5)
  1. ENALAPRIL [Suspect]
     Active Substance: ENALAPRIL
     Indication: Product used for unknown indication
     Dosage: UNK
     Route: 048
  2. LISINOPRIL [Suspect]
     Active Substance: LISINOPRIL
     Indication: Hypertension
     Dosage: UNK
     Route: 065
  3. ALTEPLASE [Suspect]
     Active Substance: ALTEPLASE
     Indication: Ischaemic stroke
     Dosage: 0.9 MILLIGRAM/KILOGRAM
     Route: 042
  4. ALTEPLASE [Concomitant]
     Active Substance: ALTEPLASE
     Indication: Ischaemic stroke
     Dosage: 54 MILLIGRAM
     Route: 042
  5. ALTEPLASE [Concomitant]
     Active Substance: ALTEPLASE
     Dosage: 63 MILLIGRAM
     Route: 042

REACTIONS (1)
  - Angioedema [Recovered/Resolved]
